FAERS Safety Report 5923716-4 (Version None)
Quarter: 2008Q4

REPORT INFORMATION
  Report Type: 
  Country: None (occurrence: None)
  Receive Date: 20081020
  Receipt Date: 20081015
  Transmission Date: 20090506
  Serious: Yes (Other)
  Sender: FDA-Public Use
  Company Number: B0528559A

PATIENT
  Age: 53 Year
  Sex: Female

DRUGS (7)
  1. REQUIP [Suspect]
     Indication: PARKINSON'S DISEASE
     Dosage: .25MG THREE TIMES PER DAY
     Route: 048
     Dates: start: 20080509, end: 20080522
  2. REQUIP [Suspect]
     Dosage: .5MG THREE TIMES PER DAY
     Route: 048
     Dates: start: 20080523, end: 20080606
  3. NAUZELIN [Suspect]
     Indication: DRUG USE FOR UNKNOWN INDICATION
     Dosage: 5MG THREE TIMES PER DAY
     Route: 048
     Dates: start: 20080509, end: 20080606
  4. MADOPAR [Concomitant]
     Indication: DRUG USE FOR UNKNOWN INDICATION
     Route: 048
  5. MUCOSTA [Concomitant]
     Indication: DRUG USE FOR UNKNOWN INDICATION
     Route: 048
  6. MAGMITT [Concomitant]
     Dosage: 660MG PER DAY
     Route: 048
  7. CHINESE MEDICINE [Concomitant]
     Dosage: 75G PER DAY
     Route: 048

REACTIONS (4)
  - BLISTER [None]
  - DERMATITIS BULLOUS [None]
  - DRUG ERUPTION [None]
  - SCAB [None]
